FAERS Safety Report 6575731-8 (Version None)
Quarter: 2010Q1

REPORT INFORMATION
  Report Type: 
  Country: None (occurrence: None)
  Receive Date: 20100208
  Receipt Date: 20100208
  Transmission Date: 20100710
  Serious: Yes (Other)
  Sender: FDA-Public Use
  Company Number: None

PATIENT
  Age: 44 Year
  Sex: Female
  Weight: 61.2356 kg

DRUGS (2)
  1. CITALOPRAM HYDROBROMIDE [Suspect]
     Indication: DEPRESSION
     Dosage: HALF 20 MG TABLET 7 DAYS INITIAL PO
     Route: 048
     Dates: start: 20091231, end: 20100108
  2. CITALOPRAM HYDROBROMIDE [Suspect]
     Indication: DEPRESSION
     Dosage: FULL 20 MG TABLET AFTER 7 DAYS PO
     Route: 048
     Dates: start: 20100109, end: 20100118

REACTIONS (7)
  - ALCOHOL INTERACTION [None]
  - ANORGASMIA [None]
  - FATIGUE [None]
  - FEELING ABNORMAL [None]
  - HAEMORRHOIDS [None]
  - HEADACHE [None]
  - LIBIDO DECREASED [None]
